FAERS Safety Report 10404034 (Version 1)
Quarter: 2014Q1

REPORT INFORMATION
  Report Type: Spontaneous
  Country: None (occurrence: None)
  Receive Date: 20131031
  Receipt Date: 20131031
  Transmission Date: 20141002
  Serious: No
  Sender: FDA-Public Use
  Company Number: 2012S1000117

PATIENT
  Age: 60 Year
  Sex: Male

DRUGS (4)
  1. KRYSTEXXA [Suspect]
     Indication: GOUT
     Route: 042
     Dates: start: 20120828
  2. HAEMOCTIN [Concomitant]
  3. DIMETINDENE [Concomitant]
  4. RANITIDIN [Concomitant]

REACTIONS (1)
  - Drug ineffective [None]
